FAERS Safety Report 6833340-7 (Version None)
Quarter: 2010Q3

REPORT INFORMATION
  Report Type: 
  Country: None (occurrence: None)
  Receive Date: 20100712
  Receipt Date: 20100629
  Transmission Date: 20110219
  Serious: Yes (Hospitalization)
  Sender: FDA-Public Use
  Company Number: PHHY2010IT37144

PATIENT
  Sex: Female

DRUGS (3)
  1. ZOMETA [Suspect]
     Indication: METASTASES TO BONE
     Dosage: UNK
     Route: 042
     Dates: start: 20071109, end: 20080329
  2. TAXOTERE [Concomitant]
     Indication: BREAST CANCER
  3. VINORELBINE [Concomitant]
     Indication: BREAST CANCER

REACTIONS (3)
  - OSTEONECROSIS OF JAW [None]
  - PERIODONTAL DISEASE [None]
  - PRIMARY SEQUESTRUM [None]
